FAERS Safety Report 6171720-6 (Version None)
Quarter: 2009Q2

REPORT INFORMATION
  Report Type: 
  Country: None (occurrence: None)
  Receive Date: 20090429
  Receipt Date: 20090422
  Transmission Date: 20091009
  Serious: Yes (Other)
  Sender: FDA-Public Use
  Company Number: B0569129A

PATIENT
  Sex: Female
  Weight: 53 kg

DRUGS (1)
  1. LAMICTAL [Suspect]
     Route: 048
     Dates: start: 20080101

REACTIONS (4)
  - AKINESIA [None]
  - HYPERTONIA [None]
  - PARKINSONISM [None]
  - TREMOR [None]
